FAERS Safety Report 20700269 (Version 1)
Quarter: 2022Q2

REPORT INFORMATION
  Report Type: Report from Study
  Country: GB (occurrence: GB)
  Receive Date: 20220412
  Receipt Date: 20220412
  Transmission Date: 20220721
  Serious: Yes (Other)
  Sender: FDA-Public Use
  Company Number: GB-JNJFOC-20211124455

PATIENT
  Age: 6 Decade
  Sex: Female

DRUGS (3)
  1. DOXYCYCLINE [Suspect]
     Active Substance: DOXYCYCLINE
     Indication: Lower respiratory tract infection
     Dosage: 100 MG, 1X/DAY, FOR A TOTAL OF SEVEN DAYS
     Route: 065
  2. DOXYCYCLINE [Suspect]
     Active Substance: DOXYCYCLINE
     Dosage: 100 MG, 2X/DAY, FOR A TOTAL OF SEVEN DAYS
     Route: 065
  3. STELARA [Suspect]
     Active Substance: USTEKINUMAB
     Indication: Psoriatic arthropathy
     Dosage: 90 MG, WEEKLY
     Route: 058
     Dates: start: 20160826

REACTIONS (2)
  - Lower respiratory tract infection [Unknown]
  - Illness [Unknown]

NARRATIVE: CASE EVENT DATE: 20210101
